FAERS Safety Report 6368906-4 (Version None)
Quarter: 2009Q3

REPORT INFORMATION
  Report Type: 
  Country: None (occurrence: None)
  Receive Date: 20090917
  Receipt Date: 20090917
  Transmission Date: 20100115
  Serious: Yes (Disabling)
  Sender: FDA-Public Use
  Company Number: None

PATIENT
  Age: 15 Year
  Sex: Male
  Weight: 62.7 kg

DRUGS (3)
  1. LEXAPRO [Suspect]
  2. XOPENEX HFA [Suspect]
  3. SINGULAIR [Suspect]

REACTIONS (6)
  - BRADYCARDIA [None]
  - HEART RATE DECREASED [None]
  - HYPERHIDROSIS [None]
  - PALLOR [None]
  - PRESYNCOPE [None]
  - UNRESPONSIVE TO STIMULI [None]
